FAERS Safety Report 16760535 (Version 1)
Quarter: 2019Q4

REPORT INFORMATION
  Report Type: Spontaneous
  Country: US (occurrence: US)
  Receive Date: 20190830
  Receipt Date: 20190830
  Transmission Date: 20200122
  Serious: No
  Sender: FDA-Public Use
  Company Number: None

PATIENT
  Age: 40 Year
  Sex: Male
  Weight: 90 kg

DRUGS (3)
  1. LYRICA [Concomitant]
     Active Substance: PREGABALIN
  2. DILAUDID [Suspect]
     Active Substance: HYDROMORPHONE HYDROCHLORIDE
  3. STADOL [Concomitant]
     Active Substance: BUTORPHANOL TARTRATE

REACTIONS (4)
  - Patient dissatisfaction with treatment [None]
  - Lipase increased [None]
  - Pain [None]
  - Pancreatitis chronic [None]

NARRATIVE: CASE EVENT DATE: 20190823
